FAERS Safety Report 10273388 (Version 5)
Quarter: 2015Q1

REPORT INFORMATION
  Report Type: Report from Study
  Country: DE (occurrence: DE)
  Receive Date: 20140702
  Receipt Date: 20150212
  Transmission Date: 20150720
  Serious: Yes (Other)
  Sender: FDA-Public Use
  Company Number: DE-INCYTE CORPORATION-2014IN001801

PATIENT
  Sex: Male
  Weight: 62 kg

DRUGS (23)
  1. INCB018424 [Suspect]
     Active Substance: RUXOLITINIB
     Dosage: 15 MG, (3 DF OF 5 MG PER DAY)
     Route: 048
     Dates: start: 20140412, end: 20140430
  2. INCB018424 [Suspect]
     Active Substance: RUXOLITINIB
     Dosage: 20 MG, (4 DF OF 5 MG PER DAY)
     Route: 048
     Dates: start: 20131224, end: 20140113
  3. TORASEMIDE [Concomitant]
     Active Substance: TORSEMIDE
     Dosage: 15 MG, QD
     Route: 065
     Dates: start: 201304, end: 20130725
  4. INCB018424 [Suspect]
     Active Substance: RUXOLITINIB
     Dosage: 10 MG, (2 DF OF 5 MG PER DAY)
     Route: 048
     Dates: start: 20130823, end: 20130827
  5. INCB018424 [Suspect]
     Active Substance: RUXOLITINIB
     Dosage: 15 MG, (3 DF OF 5 MG PER DAY)
     Route: 048
     Dates: start: 20140503, end: 20140518
  6. TORASEMIDE [Concomitant]
     Active Substance: TORSEMIDE
     Indication: OEDEMA PERIPHERAL
     Dosage: UNK
     Dates: start: 201304, end: 20130802
  7. INCB018424 [Suspect]
     Active Substance: RUXOLITINIB
     Dosage: 20 MG, (4 DF OF 5 MG PER DAY)
     Route: 048
     Dates: start: 20131031, end: 20131103
  8. INCB018424 [Suspect]
     Active Substance: RUXOLITINIB
     Dosage: 20 MG, (4 DF OF 5 MG PER DAY)
     Route: 048
     Dates: start: 20140519, end: 20140731
  9. DUODART 0.5/0.4 MG [Concomitant]
     Indication: BENIGN PROSTATIC HYPERPLASIA
     Dosage: 0.5/0.4 MG
     Route: 065
     Dates: start: 20130726, end: 2014
  10. INCB018424 [Suspect]
     Active Substance: RUXOLITINIB
     Dosage: 10 MG (2 DF OF 5 MG PER DAY)
     Route: 048
     Dates: start: 20130904, end: 20130910
  11. INCB018424 [Suspect]
     Active Substance: RUXOLITINIB
     Dosage: 20 MG, (4 DF OF 5 MG PER DAY)
     Route: 048
     Dates: start: 20130911, end: 20131029
  12. INCB018424 [Suspect]
     Active Substance: RUXOLITINIB
     Dosage: 30 MG, (2 DF OF 15 MG PER DAY)
     Route: 048
     Dates: start: 20140114, end: 20140328
  13. SPIRONOLACTONE. [Concomitant]
     Active Substance: SPIRONOLACTONE
     Dosage: 100 MG, QD
     Route: 065
     Dates: end: 20130725
  14. INCB018424 [Suspect]
     Active Substance: RUXOLITINIB
     Indication: MYELOFIBROSIS
     Dosage: 30 MG, (6 DF OF 5 MG PER DAY)
     Route: 048
     Dates: start: 20130720, end: 20130822
  15. INCB018424 [Suspect]
     Active Substance: RUXOLITINIB
     Dosage: 20 MG, (4 DF OF 5 MG PER DAY)
     Route: 048
     Dates: start: 20131107, end: 20131118
  16. INCB018424 [Suspect]
     Active Substance: RUXOLITINIB
     Dosage: 10 MG, (2 DF OF 5 MG PER DAY)
     Route: 048
     Dates: start: 20140501, end: 20140502
  17. SPIRONOLACTONE. [Concomitant]
     Active Substance: SPIRONOLACTONE
     Indication: OEDEMA PERIPHERAL
     Dosage: UNK
     Dates: end: 20131119
  18. INCB018424 [Suspect]
     Active Substance: RUXOLITINIB
     Dosage: 20 MG, (4 DF OF 5 MG PER DAY)
     Route: 048
     Dates: start: 20131130, end: 20131218
  19. INCB018424 [Suspect]
     Active Substance: RUXOLITINIB
     Dosage: 10 MG, (2 DF OF 5 MG PER DAY)
     Route: 048
     Dates: start: 20140328, end: 20140411
  20. SPIRONOLACTONE. [Concomitant]
     Active Substance: SPIRONOLACTONE
     Dosage: 50 MG, QD
     Route: 065
     Dates: start: 20130726, end: 20131119
  21. INCB018424 [Suspect]
     Active Substance: RUXOLITINIB
     Dosage: 30 MG, (2 DF OF 5 MG PER DAY)
     Route: 048
     Dates: start: 20131219, end: 20131223
  22. INCB018424 [Suspect]
     Active Substance: RUXOLITINIB
     Dosage: 10 MG, QD
     Route: 048
     Dates: start: 20141117
  23. TORASEMIDE [Concomitant]
     Active Substance: TORSEMIDE
     Dosage: 10 MG, QD
     Route: 065
     Dates: start: 20130726, end: 20130802

REACTIONS (3)
  - Dizziness [Unknown]
  - Leukocytosis [Recovered/Resolved]
  - Leukocytosis [Not Recovered/Not Resolved]

NARRATIVE: CASE EVENT DATE: 20140516
